FAERS Safety Report 6793405-5 (Version None)
Quarter: 2010Q2

REPORT INFORMATION
  Report Type: 
  Country: None (occurrence: None)
  Receive Date: 20100624
  Receipt Date: 20100329
  Transmission Date: 20101027
  Serious: Yes (Life-Threatening, Other)
  Sender: FDA-Public Use
  Company Number: US-MYLANLABS-2010S1002160

PATIENT
  Age: 52 Year
  Sex: Female
  Weight: 81.65 kg

DRUGS (7)
  1. CLOZAPINE [Suspect]
     Indication: SCHIZOPHRENIA, PARANOID TYPE
     Route: 048
     Dates: end: 20100216
  2. CLOZAPINE [Suspect]
     Route: 048
     Dates: start: 20100217, end: 20100225
  3. LORAZEPAM [Concomitant]
  4. SERTRALINE HCL [Concomitant]
  5. MIRALAX [Concomitant]
  6. PRILOSEC [Concomitant]
  7. CALCIUM + VITAMIN D [Concomitant]

REACTIONS (3)
  - AGRANULOCYTOSIS [None]
  - GRANULOCYTOPENIA [None]
  - LEUKOPENIA [None]
